FAERS Safety Report 7737975-9 (Version None)
Quarter: 2011Q3

REPORT INFORMATION
  Report Type: 
  Country: None (occurrence: None)
  Receive Date: 20110908
  Receipt Date: 20110830
  Transmission Date: 20111222
  Serious: Yes (Hospitalization)
  Sender: FDA-Public Use
  Company Number: JP-ELI_LILLY_AND_COMPANY-JP201108009538

PATIENT
  Sex: Male

DRUGS (2)
  1. LANTUS [Concomitant]
  2. HUMALOG [Suspect]
     Route: 058

REACTIONS (1)
  - HOSPITALISATION [None]
